FAERS Safety Report 7630602-0 (Version None)
Quarter: 2011Q3

REPORT INFORMATION
  Report Type: 
  Country: None (occurrence: None)
  Receive Date: 20110722
  Receipt Date: 20110712
  Transmission Date: 20111222
  Serious: Yes (Hospitalization)
  Sender: FDA-Public Use
  Company Number: US-ELI_LILLY_AND_COMPANY-US201105005313

PATIENT
  Sex: Female

DRUGS (2)
  1. HUMATROPE [Suspect]
     Dosage: UNK, UNKNOWN
     Route: 058
  2. VIVELLE [Concomitant]
     Dosage: 25 MG, OVERNIGHT ONLY

REACTIONS (1)
  - COLITIS ULCERATIVE [None]
